FAERS Safety Report 9416079 (Version 1)
Quarter: 2013Q3

REPORT INFORMATION
  Report Type: Spontaneous
  Country: US (occurrence: None)
  Receive Date: 20130717
  Receipt Date: 20130717
  Transmission Date: 20140515
  Serious: Yes (Other)
  Sender: FDA-Public Use
  Company Number: 2013AP006579

PATIENT
  Age: 52 Year
  Sex: Female

DRUGS (6)
  1. FLUCONAZOLE [Suspect]
     Indication: IMMUNE SYSTEM DISORDER
  2. PHENYTOIN [Suspect]
     Indication: STATUS EPILEPTICUS
     Route: 042
  3. TACROLIMUS [Suspect]
     Indication: LIVER TRANSPLANT REJECTION
  4. FOSPHENYTOIN [Concomitant]
  5. VANCOMYCIN [Concomitant]
  6. MEROPENEM [Concomitant]

REACTIONS (6)
  - Electrocardiogram QT prolonged [None]
  - Status epilepticus [None]
  - Toxicity to various agents [None]
  - Inhibitory drug interaction [None]
  - Electrocardiogram ST segment elevation [None]
  - Tachycardia [None]
